FAERS Safety Report 9928020 (Version 1)
Quarter: 2014Q1

REPORT INFORMATION
  Report Type: Report from Study
  Country: US (occurrence: US)
  Receive Date: 20140227
  Receipt Date: 20140227
  Transmission Date: 20141002
  Serious: Yes (Other)
  Sender: FDA-Public Use
  Company Number: US-ROCHE-1355146

PATIENT
  Sex: Female

DRUGS (3)
  1. LUCENTIS [Suspect]
     Indication: DIABETIC EYE DISEASE
     Dosage: LEFT EYE
     Route: 050
  2. LANTUS [Concomitant]
  3. NOVOLOG [Concomitant]

REACTIONS (4)
  - Blindness unilateral [Unknown]
  - Laryngospasm [Unknown]
  - Visual acuity reduced [Unknown]
  - Eye haemorrhage [Unknown]
